FAERS Safety Report 20957332 (Version 1)
Quarter: 2022Q2

REPORT INFORMATION
  Report Type: Spontaneous
  Country: BR (occurrence: BR)
  Receive Date: 20220614
  Receipt Date: 20220614
  Transmission Date: 20220721
  Serious: Yes (Other)
  Sender: FDA-Public Use
  Company Number: BR-TAKEDA-2022TUS038613

PATIENT
  Age: 73 Year
  Sex: Male

DRUGS (6)
  1. PANTOPRAZOLE [Suspect]
     Active Substance: PANTOPRAZOLE
     Indication: Gastric ulcer
     Dosage: UNK
     Route: 065
  2. VONOPRAZAN [Suspect]
     Active Substance: VONOPRAZAN
     Indication: Gastric ulcer
     Dosage: 20 MILLIGRAM, QD
     Route: 048
     Dates: start: 20220531, end: 20220604
  3. AMLODIPINE BESYLATE [Concomitant]
     Active Substance: AMLODIPINE BESYLATE
     Indication: Hypertension
     Dosage: UNK
     Route: 065
  4. SILIMALON [Concomitant]
     Indication: Liver disorder
     Dosage: UNK
     Route: 065
  5. DIMENHYDRINATE [Concomitant]
     Active Substance: DIMENHYDRINATE
     Indication: Vomiting
     Dosage: UNK
     Route: 065
  6. BROMOPRIDE [Concomitant]
     Active Substance: BROMOPRIDE
     Indication: Vomiting
     Dosage: UNK
     Route: 065

REACTIONS (8)
  - Hepatic cirrhosis [Unknown]
  - Dermatitis allergic [Recovering/Resolving]
  - Burning sensation [Recovering/Resolving]
  - Scab [Recovering/Resolving]
  - Allergy to chemicals [Unknown]
  - Glucose tolerance impaired [Unknown]
  - Abdominal pain upper [Unknown]
  - Hypertension [Unknown]

NARRATIVE: CASE EVENT DATE: 20220531
